FAERS Safety Report 23092351 (Version 1)
Quarter: 2023Q4

REPORT INFORMATION
  Report Type: Spontaneous
  Country: US (occurrence: None)
  Receive Date: 20231021
  Receipt Date: 20231021
  Transmission Date: 20240109
  Serious: No
  Sender: FDA-Public Use
  Company Number: 2023A237004

PATIENT

DRUGS (1)
  1. SYMBICORT [Suspect]
     Active Substance: BUDESONIDE\FORMOTEROL FUMARATE DIHYDRATE
     Dosage: 120 INHALATION, UNKNOWN UNKNOWN
     Route: 055

REACTIONS (3)
  - Illness [Unknown]
  - Condition aggravated [Unknown]
  - Product packaging quantity issue [Unknown]
